FAERS Safety Report 17314011 (Version 1)
Quarter: 2020Q1

REPORT INFORMATION
  Report Type: Spontaneous
  Country: US (occurrence: US)
  Receive Date: 20200123
  Receipt Date: 20200123
  Transmission Date: 20200409
  Serious: No
  Sender: FDA-Public Use
  Company Number: None

PATIENT
  Age: 61 Year
  Sex: Female
  Weight: 45.45 kg

DRUGS (9)
  1. TEMAZEPAM. [Concomitant]
     Active Substance: TEMAZEPAM
  2. CAPECITABINE. [Suspect]
     Active Substance: CAPECITABINE
     Indication: COLON CANCER
     Route: 048
  3. MORPHINE [Concomitant]
     Active Substance: MORPHINE
  4. CELEXA [Concomitant]
     Active Substance: CITALOPRAM HYDROBROMIDE
  5. PROCHLORPERAZINE. [Concomitant]
     Active Substance: PROCHLORPERAZINE
  6. HYDROCODONE BITARTRATE AND ACETAMINOPHEN [Concomitant]
     Active Substance: ACETAMINOPHEN\HYDROCODONE BITARTRATE
  7. POTASSIUM CHLORIDE. [Concomitant]
     Active Substance: POTASSIUM CHLORIDE
  8. SENNA [Concomitant]
     Active Substance: SENNA LEAF\SENNOSIDES\SENNOSIDES A AND B
  9. OXYCODONE [Concomitant]
     Active Substance: OXYCODONE

REACTIONS (1)
  - Disease progression [None]

NARRATIVE: CASE EVENT DATE: 20200123
